FAERS Safety Report 16066868 (Version 2)
Quarter: 2019Q2

REPORT INFORMATION
  Report Type: Spontaneous
  Country: US (occurrence: US)
  Receive Date: 20190313
  Receipt Date: 20190405
  Transmission Date: 20190711
  Serious: Yes (Other)
  Sender: FDA-Public Use
  Company Number: US-BAYER-2019-042912

PATIENT
  Age: 65 Year
  Sex: Male

DRUGS (14)
  1. LUPRON [Suspect]
     Active Substance: LEUPROLIDE ACETATE
     Dosage: UNK
     Dates: start: 20170608
  2. ALLOPURINOL. [Concomitant]
     Active Substance: ALLOPURINOL
     Dosage: DAILY DOSE 300 MG
  3. LUPRON DEPOT [Concomitant]
     Active Substance: LEUPROLIDE ACETATE
     Dosage: DAILY DOSE 22.5 MG
  4. VITAMIN C [Concomitant]
     Active Substance: ASCORBIC ACID
     Dosage: UNK
  5. XGEVA [Suspect]
     Active Substance: DENOSUMAB
     Dosage: 120MG/1.7ML
     Route: 058
     Dates: start: 20180717
  6. VITAMIN D [VITAMIN D NOS] [Concomitant]
     Active Substance: VITAMIN D NOS
     Dosage: UNK
  7. ASPIRIN [ACETYLSALICYLIC ACID] [Concomitant]
     Active Substance: ASPIRIN
     Dosage: DAILY DOSE 81 MG
  8. LISINOPRIL. [Concomitant]
     Active Substance: LISINOPRIL
     Dosage: DAILY DOSE 20 MG
  9. ONDANSETRON HCL [Concomitant]
     Active Substance: ONDANSETRON HYDROCHLORIDE
     Dosage: UNK
     Dates: start: 20181130
  10. XTANDI [Suspect]
     Active Substance: ENZALUTAMIDE
     Indication: PROSTATE CANCER
     Dosage: 160 MG, QD
     Route: 048
     Dates: start: 20180105
  11. LUPRON [Suspect]
     Active Substance: LEUPROLIDE ACETATE
     Dosage: UNK
     Dates: start: 20140103, end: 20141105
  12. ZOLPIDEM TARTATE [Concomitant]
     Active Substance: ZOLPIDEM TARTRATE
     Dosage: DAILY DOSE 10 MG
  13. TRAZODONE HYDROCHLORIDE. [Concomitant]
     Active Substance: TRAZODONE HYDROCHLORIDE
     Dosage: DAILY DOSE 100 MG
  14. XOFIGO [Suspect]
     Active Substance: RADIUM RA-223 DICHLORIDE
     Indication: PROSTATE CANCER
     Dosage: UNK
     Route: 048
     Dates: start: 20180907, end: 20190125

REACTIONS (8)
  - Asthenia [Not Recovered/Not Resolved]
  - Fatigue [None]
  - Prostatic specific antigen increased [None]
  - Nausea [None]
  - Pain [None]
  - Headache [None]
  - Hot flush [None]
  - Decreased appetite [None]

NARRATIVE: CASE EVENT DATE: 20190119
